FAERS Safety Report 6239818-1 (Version None)
Quarter: 2009Q2

REPORT INFORMATION
  Report Type: 
  Country: None (occurrence: None)
  Receive Date: 20090623
  Receipt Date: 20090615
  Transmission Date: 20091009
  Serious: Yes (Hospitalization)
  Sender: FDA-Public Use
  Company Number: US-JNJFOC-20071204620

PATIENT
  Sex: Female
  Weight: 70.5 kg

DRUGS (20)
  1. GOLIMUMAB [Suspect]
     Route: 058
  2. GOLIMUMAB [Suspect]
     Route: 058
  3. GOLIMUMAB [Suspect]
     Route: 058
  4. GOLIMUMAB [Suspect]
     Route: 058
  5. GOLIMUMAB [Suspect]
     Route: 058
  6. GOLIMUMAB [Suspect]
     Route: 058
  7. GOLIMUMAB [Suspect]
     Route: 058
  8. GOLIMUMAB [Suspect]
     Route: 058
  9. GOLIMUMAB [Suspect]
     Route: 058
  10. GOLIMUMAB [Suspect]
     Indication: RHEUMATOID ARTHRITIS
     Route: 058
  11. REFRESH TEARS [Concomitant]
     Route: 047
  12. SYNTHROID [Concomitant]
     Route: 048
  13. DIOVAN [Concomitant]
     Route: 048
  14. HYDROCHLOROTHIAZDE TAB [Concomitant]
     Route: 048
  15. ALLEGRA [Concomitant]
     Route: 048
  16. MULTI-VITAMIN [Concomitant]
     Route: 048
  17. CALCIUM [Concomitant]
     Route: 048
  18. PREDNISONE [Concomitant]
     Route: 048
  19. COREG [Concomitant]
     Route: 048
  20. VICODIN [Concomitant]
     Dosage: DOSE 5/500
     Route: 048

REACTIONS (1)
  - PNEUMONIA [None]
